FAERS Safety Report 4583356-9 (Version None)
Quarter: 2005Q1

REPORT INFORMATION
  Report Type: 
  Country: None (occurrence: None)
  Receive Date: 20050125
  Receipt Date: 20040927
  Transmission Date: 20050727
  Serious: No
  Sender: FDA-Public Use
  Company Number: USA031153466

PATIENT
  Age: 69 Year
  Sex: Female
  Weight: 66 kg

DRUGS (16)
  1. FORTEO [Suspect]
     Indication: OSTEOPOROSIS
     Dosage: 20 UG DAY
     Dates: start: 20030501
  2. NORVASC [Concomitant]
  3. NEURONTIN [Concomitant]
  4. ACTONEL [Concomitant]
  5. ENALAPRIL [Concomitant]
  6. TEMAZEPAM [Concomitant]
  7. GALENIC /ESTROGENS/MEDROXYPROGESTERONE/ [Concomitant]
  8. BENTYL [Concomitant]
  9. CHLOR-TRIMETON [Concomitant]
  10. ULTRAM [Concomitant]
  11. NAPROSYN [Concomitant]
  12. NIFEDIPINE [Concomitant]
  13. CALCIUM MAGNESIUM ZINC [Concomitant]
  14. NEXIUM [Concomitant]
  15. BEXTRA [Concomitant]
  16. CALCIUM AND VITAMIN D [Concomitant]

REACTIONS (4)
  - ASTHENIA [None]
  - BLOOD CALCIUM INCREASED [None]
  - PAIN IN EXTREMITY [None]
  - URINARY TRACT INFECTION [None]
